FAERS Safety Report 4699302-3 (Version None)
Quarter: 2005Q2

REPORT INFORMATION
  Report Type: 
  Country: None (occurrence: None)
  Receive Date: 20050624
  Receipt Date: 20041102
  Transmission Date: 20051028
  Serious: Yes (Hospitalization)
  Sender: FDA-Public Use
  Company Number: FR-GLAXOSMITHKLINE-B0350518A

PATIENT
  Age: 28 Year
  Sex: Female

DRUGS (3)
  1. LAMICTAL [Suspect]
     Indication: EPILEPSY
     Dosage: 500MG PER DAY
     Route: 048
  2. TEGRETOL [Concomitant]
     Route: 065
     Dates: start: 20041027
  3. CELESTENE [Concomitant]
     Route: 065
     Dates: start: 20041030, end: 20041031

REACTIONS (4)
  - DRUG EXPOSURE DURING PREGNANCY [None]
  - PREMATURE LABOUR [None]
  - SEDATION [None]
  - STATUS EPILEPTICUS [None]
